FAERS Safety Report 18975531 (Version 2)
Quarter: 2021Q1

REPORT INFORMATION
  Report Type: Spontaneous
  Country: JP (occurrence: JP)
  Receive Date: 20210305
  Receipt Date: 20210330
  Transmission Date: 20210420
  Serious: Yes (Other)
  Sender: FDA-Public Use
  Company Number: JP-TEVA-2021-JP-000896J

PATIENT
  Sex: Male

DRUGS (9)
  1. MUCOSTA [Concomitant]
     Active Substance: REBAMIPIDE
     Route: 048
  2. ADONA [Concomitant]
     Route: 048
  3. MAGNESIUM OXIDE. [Concomitant]
     Active Substance: MAGNESIUM OXIDE
     Indication: CONSTIPATION
     Route: 048
  4. MEVALOTIN [Concomitant]
     Active Substance: PRAVASTATIN SODIUM
     Route: 048
  5. TAKEPRON OD TABLETS 15 [Suspect]
     Active Substance: LANSOPRAZOLE
     Indication: PRODUCT USED FOR UNKNOWN INDICATION
     Route: 048
     Dates: start: 20171010
  6. NOVORAPID [Concomitant]
     Active Substance: INSULIN ASPART
     Route: 065
  7. AMLODIN [Concomitant]
     Active Substance: AMLODIPINE BESYLATE
     Route: 048
  8. TRESIBA [Concomitant]
     Active Substance: INSULIN DEGLUDEC
     Route: 065
  9. BLOPRESS TABLETS 8 [Suspect]
     Active Substance: CANDESARTAN CILEXETIL
     Indication: PRODUCT USED FOR UNKNOWN INDICATION
     Route: 048

REACTIONS (5)
  - Anaemia [Unknown]
  - White blood cell count decreased [Unknown]
  - Gastric cancer [Unknown]
  - Carcinoembryonic antigen increased [Unknown]
  - Red blood cell count decreased [Unknown]

NARRATIVE: CASE EVENT DATE: 2021
